FAERS Safety Report 8925193 (Version 2)
Quarter: 2013Q1

REPORT INFORMATION
  Report Type: Spontaneous
  Country: US (occurrence: US)
  Receive Date: 20121116
  Receipt Date: 20130102
  Transmission Date: 20140127
  Serious: Yes (Hospitalization)
  Sender: FDA-Public Use
  Company Number: 2012SP003556

PATIENT
  Sex: Male

DRUGS (13)
  1. LUNESTA [Suspect]
     Indication: INSOMNIA
     Route: 048
     Dates: start: 2008, end: 20121225
  2. ALCOHOL [Suspect]
     Indication: PRODUCT USED FOR UNKNOWN INDICATION
  3. ALL OTHER THERAPEUTIC PRODUCTS [Suspect]
     Indication: PRODUCT USED FOR UNKNOWN INDICATION
  4. TIZANIDINE [Concomitant]
     Indication: SLEEP DISORDER
  5. WELLBUTRIN [Concomitant]
     Indication: PRODUCT USED FOR UNKNOWN INDICATION
  6. CORTICOSTEROIDS FOR SYSTEMIC USE [Concomitant]
     Indication: BACK PAIN
     Route: 008
  7. VICODIN [Concomitant]
     Indication: BACK PAIN
  8. OXYCODONE [Concomitant]
     Indication: BACK PAIN
  9. GABAPENTIN [Concomitant]
     Indication: SLEEP DISORDER
  10. MELATONIN [Concomitant]
     Indication: SLEEP DISORDER
  11. SEROQUEL [Concomitant]
     Indication: PRODUCT USED FOR UNKNOWN INDICATION
     Dates: start: 20121225
  12. LORAZEPAM [Concomitant]
     Indication: SLEEP DISORDER
     Dates: start: 20121225
  13. SKELAXIN                           /00611501/ [Concomitant]
     Indication: SLEEP DISORDER

REACTIONS (9)
  - Aggression [Recovered/Resolved]
  - Impulse-control disorder [Recovered/Resolved]
  - Drug ineffective [Recovered/Resolved]
  - Hallucination, visual [Recovered/Resolved]
  - Back pain [Unknown]
  - Verbal abuse [Unknown]
  - Physical assault [Recovered/Resolved]
  - Amnesia [Recovered/Resolved]
  - Initial insomnia [Unknown]
